FAERS Safety Report 7714545-X (Version None)
Quarter: 2011Q3

REPORT INFORMATION
  Report Type: 
  Country: None (occurrence: None)
  Receive Date: 20110829
  Receipt Date: 20110818
  Transmission Date: 20111222
  Serious: Yes (Hospitalization)
  Sender: FDA-Public Use
  Company Number: US-JNJFOC-20110809654

PATIENT
  Sex: Male
  Weight: 52.4 kg

DRUGS (4)
  1. REMICADE [Suspect]
     Route: 042
     Dates: start: 20060317, end: 20100911
  2. REMICADE [Suspect]
     Indication: INFLAMMATORY BOWEL DISEASE
     Route: 042
     Dates: start: 20110207
  3. MESALAMINE [Concomitant]
  4. METHOTREXATE [Concomitant]

REACTIONS (1)
  - COLONIC STENOSIS [None]
